FAERS Safety Report 16453590 (Version 1)
Quarter: 2019Q2

REPORT INFORMATION
  Report Type: Spontaneous
  Country: GB (occurrence: GB)
  Receive Date: 20190619
  Receipt Date: 20190619
  Transmission Date: 20190711
  Serious: Yes (Hospitalization)
  Sender: FDA-Public Use
  Company Number: GB-ANIPHARMA-2019-UK-000085

PATIENT
  Age: 22 Year
  Sex: Female

DRUGS (2)
  1. ERYTHROMYCIN ETHYLSUCCINATE (NON-SPECIFIC) [Suspect]
     Active Substance: ERYTHROMYCIN ETHYLSUCCINATE
     Indication: LUNG INFECTION
  2. PREDNISOLONE. [Suspect]
     Active Substance: PREDNISOLONE
     Indication: ASTHMA

REACTIONS (3)
  - Vomiting [Recovered/Resolved]
  - Drug interaction [Unknown]
  - Starvation ketoacidosis [Recovered/Resolved]
